FAERS Safety Report 15159940 (Version 2)
Quarter: 2018Q3

REPORT INFORMATION
  Report Type: Spontaneous
  Country: ES (occurrence: ES)
  Receive Date: 20180718
  Receipt Date: 20180727
  Transmission Date: 20181010
  Serious: Yes (Other)
  Sender: FDA-Public Use
  Company Number: ES-SA-2018SA184860

PATIENT
  Age: 43 Year
  Sex: Female

DRUGS (2)
  1. VANDETANIB. [Suspect]
     Active Substance: VANDETANIB
     Indication: THYROID CANCER
     Dosage: 300 MG, QD
  2. SORAFENIB [Concomitant]
     Active Substance: SORAFENIB
     Indication: MEDULLARY THYROID CANCER
     Dosage: UNK

REACTIONS (3)
  - Night blindness [Recovered/Resolved]
  - Vision blurred [Recovered/Resolved]
  - Cornea verticillata [Recovered/Resolved]

NARRATIVE: CASE EVENT DATE: 201601
